FAERS Safety Report 6917328-3 (Version None)
Quarter: 2010Q3

REPORT INFORMATION
  Report Type: 
  Country: None (occurrence: None)
  Receive Date: 20100810
  Receipt Date: 20100802
  Transmission Date: 20110219
  Serious: Yes (Other)
  Sender: FDA-Public Use
  Company Number: US-SANOFI-AVENTIS-2010SA045932

PATIENT
  Age: 75 Year
  Sex: Male

DRUGS (2)
  1. LANTUS [Suspect]
     Dosage: DOSE:14 UNIT(S)
     Route: 058
  2. CAFFEINE [Suspect]

REACTIONS (7)
  - BLOOD GLUCOSE DECREASED [None]
  - CONTUSION [None]
  - DIZZINESS [None]
  - DRUG INTERACTION [None]
  - HYPOGLYCAEMIA [None]
  - MALAISE [None]
  - ROAD TRAFFIC ACCIDENT [None]
